FAERS Safety Report 8522768-5 (Version None)
Quarter: 2012Q3

REPORT INFORMATION
  Report Type: 
  Country: None (occurrence: None)
  Receive Date: 20120719
  Receipt Date: 20120706
  Transmission Date: 20120928
  Serious: Yes (Hospitalization)
  Sender: FDA-Public Use
  Company Number: FR-FRI-1000036978

PATIENT
  Age: 58 Year
  Sex: Male
  Weight: 61 kg

DRUGS (3)
  1. MILNACIPRAN [Suspect]
     Dosage: 75 MG
     Route: 048
     Dates: start: 20120501, end: 20120704
  2. MILNACIPRAN [Suspect]
     Indication: DEPRESSION
     Dosage: 100 MG
     Route: 048
     Dates: start: 20120401, end: 20120501
  3. MILNACIPRAN [Suspect]
     Dosage: 50 MG
     Route: 048
     Dates: start: 20120705

REACTIONS (4)
  - HYPERTENSION [None]
  - WEIGHT DECREASED [None]
  - MOOD ALTERED [None]
  - PALPITATIONS [None]
